FAERS Safety Report 8341138-6 (Version None)
Quarter: 2012Q2

REPORT INFORMATION
  Report Type: 
  Country: None (occurrence: None)
  Receive Date: 20120507
  Receipt Date: 20120423
  Transmission Date: 20120825
  Serious: Yes (Death, Hospitalization, Other)
  Sender: FDA-Public Use
  Company Number: TR-RANBAXY-2012RR-55117

PATIENT
  Age: 19 Year
  Sex: Female

DRUGS (1)
  1. METFORMIN HCL [Suspect]
     Indication: SUICIDE ATTEMPT
     Dosage: 25 TABLETS OF 500 MG, SINGLE, (250MG/KG BODY WEIGHT)
     Route: 048

REACTIONS (3)
  - RENAL FAILURE ACUTE [None]
  - LACTIC ACIDOSIS [None]
  - INTENTIONAL OVERDOSE [None]
